FAERS Safety Report 25203246 (Version 1)
Quarter: 2025Q2

REPORT INFORMATION
  Report Type: Spontaneous
  Country: JP (occurrence: JP)
  Receive Date: 20250416
  Receipt Date: 20250416
  Transmission Date: 20250716
  Serious: Yes (Hospitalization)
  Sender: ALEXION PHARMACEUTICALS
  Company Number: JP-ASTRAZENECA-250026803_012620_P_1

PATIENT
  Age: 65 Year

DRUGS (5)
  1. FULVESTRANT [Suspect]
     Active Substance: FULVESTRANT
     Indication: Breast cancer
  2. FULVESTRANT [Suspect]
     Active Substance: FULVESTRANT
  3. TRUQAP [Suspect]
     Active Substance: CAPIVASERTIB
     Indication: Breast cancer
  4. TRUQAP [Suspect]
     Active Substance: CAPIVASERTIB
     Dosage: DOSING 4 DAYS IN A ROW FOLLOWED BY A 3-DAY BREAK
  5. TRUQAP [Suspect]
     Active Substance: CAPIVASERTIB
     Dosage: DOSING 4 DAYS IN A ROW FOLLOWED BY A 3-DAY BREAK

REACTIONS (1)
  - Erythema multiforme [Recovering/Resolving]
